FAERS Safety Report 20735705 (Version 2)
Quarter: 2022Q2

REPORT INFORMATION
  Report Type: Spontaneous
  Country: US (occurrence: US)
  Receive Date: 20220421
  Receipt Date: 20220506
  Transmission Date: 20220720
  Serious: Yes (Other)
  Sender: FDA-Public Use
  Company Number: US-PFIZER INC-202200569195

PATIENT
  Age: 15 Year
  Sex: Female

DRUGS (2)
  1. INFLIXIMAB [Suspect]
     Active Substance: INFLIXIMAB
     Indication: Juvenile idiopathic arthritis
     Dosage: EVERY 4 WEEKS FOR APPROXIMATELY 3 MONTHS
  2. INFLIXIMAB [Suspect]
     Active Substance: INFLIXIMAB
     Dosage: EVERY 3 WEEKS (SUBSEQUENTLY INCREASED TO EVERY 3 WEEKS)

REACTIONS (1)
  - Parapsoriasis [Recovering/Resolving]
